FAERS Safety Report 6892223-7 (Version None)
Quarter: 2010Q3

REPORT INFORMATION
  Report Type: 
  Country: None (occurrence: None)
  Receive Date: 20100731
  Receipt Date: 20080303
  Transmission Date: 20110219
  Serious: No
  Sender: FDA-Public Use
  Company Number: US-PFIZER INC-2008019900

PATIENT
  Sex: Female
  Weight: 56.363 kg

DRUGS (5)
  1. NEURONTIN [Suspect]
     Indication: HERPES ZOSTER
     Dates: start: 19990101
  2. GABAPENTIN [Suspect]
     Indication: HERPES ZOSTER
  3. LYRICA [Suspect]
     Dates: start: 20070101, end: 20070101
  4. KEPPRA [Suspect]
  5. RANITIDINE [Concomitant]

REACTIONS (10)
  - ADVERSE DRUG REACTION [None]
  - BALANCE DISORDER [None]
  - DRUG DEPENDENCE [None]
  - EYE DISORDER [None]
  - HYPOAESTHESIA [None]
  - MALAISE [None]
  - MUSCLE SPASMS [None]
  - NAUSEA [None]
  - ULCER [None]
  - VISION BLURRED [None]
